FAERS Safety Report 8087514-0 (Version None)
Quarter: 2012Q1

REPORT INFORMATION
  Report Type: 
  Country: None (occurrence: None)
  Receive Date: 20120128
  Receipt Date: 20110407
  Transmission Date: 20120608
  Serious: Yes (Other)
  Sender: FDA-Public Use
  Company Number: US-ABBOTT-11P-163-0717722-00

PATIENT
  Age: 50 Year
  Sex: Male

DRUGS (3)
  1. HUMIRA [Suspect]
     Indication: PSORIASIS
     Dates: start: 20080101, end: 20090101
  2. OMEPRAZOLE [Concomitant]
     Indication: OESOPHAGEAL DISORDER
  3. HUMIRA [Suspect]
     Dates: start: 20100101, end: 20110301

REACTIONS (6)
  - ILL-DEFINED DISORDER [None]
  - POLYP [None]
  - SKIN CANCER [None]
  - SENSATION OF FOREIGN BODY [None]
  - SINUS CONGESTION [None]
  - INFECTION [None]
